FAERS Safety Report 5278501-6 (Version None)
Quarter: 2007Q1

REPORT INFORMATION
  Report Type: 
  Country: None (occurrence: None)
  Receive Date: 20070322
  Receipt Date: 20070315
  Transmission Date: 20070707
  Serious: Yes (Death)
  Sender: FDA-Public Use
  Company Number: 237478

PATIENT
  Age: 71 Year
  Sex: Male
  Weight: 65.3 kg

DRUGS (8)
  1. AVASTIN [Suspect]
     Indication: COLORECTAL CANCER METASTATIC
     Dosage: 552 MG, Q2W, INTRAVENOUS
     Route: 042
     Dates: start: 20061206, end: 20070212
  2. CETUXIMAB (CETUXIMAB) [Suspect]
     Indication: COLORECTAL CANCER METASTATIC
     Dosage: 470 MG, 1/WEEK, INTRAVENOUS
     Route: 042
     Dates: start: 20061206, end: 20070212
  3. FLUOROURACIL [Suspect]
     Indication: COLORECTAL CANCER METASTATIC
     Dosage: SEE IMAGE
     Route: 042
     Dates: start: 20061206, end: 20070212
  4. FLUOROURACIL [Suspect]
     Indication: COLORECTAL CANCER METASTATIC
     Dosage: SEE IMAGE
     Route: 042
     Dates: start: 20061206, end: 20070212
  5. LEUCOVORIN CALCIUM [Suspect]
     Indication: COLORECTAL CANCER METASTATIC
     Dosage: 752 MG, Q2W, INTRAVENOUS
     Route: 042
     Dates: start: 20061206, end: 20070212
  6. BENICAR [Concomitant]
  7. NORVASC [Concomitant]
  8. VICODIN [Concomitant]

REACTIONS (2)
  - ABDOMINAL PAIN [None]
  - PAIN [None]
